FAERS Safety Report 11801209 (Version 2)
Quarter: 2015Q4

REPORT INFORMATION
  Report Type: Spontaneous
  Country: US (occurrence: US)
  Receive Date: 20151204
  Receipt Date: 20151230
  Transmission Date: 20160305
  Serious: No
  Sender: FDA-Public Use
  Company Number: US-TEVA-612751USA

PATIENT
  Sex: Female
  Weight: 49.94 kg

DRUGS (4)
  1. BUSPIRONE [Suspect]
     Active Substance: BUSPIRONE HYDROCHLORIDE
     Indication: DRUG WITHDRAWAL MAINTENANCE THERAPY
     Dosage: 5 MILLIGRAM DAILY;
     Route: 065
     Dates: start: 20150801, end: 201508
  2. BUSPIRONE [Suspect]
     Active Substance: BUSPIRONE HYDROCHLORIDE
     Dosage: 20 MILLIGRAM DAILY;
     Route: 065
     Dates: start: 201508
  3. BUSPIRONE [Suspect]
     Active Substance: BUSPIRONE HYDROCHLORIDE
     Dosage: 30 MILLIGRAM DAILY;
     Route: 065
     Dates: start: 201509
  4. BUSPIRONE [Suspect]
     Active Substance: BUSPIRONE HYDROCHLORIDE
     Dosage: 40 MILLIGRAM DAILY;
     Route: 065
     Dates: start: 201509

REACTIONS (2)
  - Acne [Unknown]
  - Dermatitis [Unknown]
